FAERS Safety Report 7432321-2 (Version None)
Quarter: 2011Q2

REPORT INFORMATION
  Report Type: 
  Country: None (occurrence: None)
  Receive Date: 20110422
  Receipt Date: 20110418
  Transmission Date: 20111010
  Serious: Yes (Death, Other)
  Sender: FDA-Public Use
  Company Number: GB-JNJFOC-20091004303

PATIENT
  Sex: Female

DRUGS (21)
  1. ROPINIROLE [Suspect]
     Indication: PARKINSON'S DISEASE
     Route: 048
  2. FORTISIP [Concomitant]
     Indication: ILL-DEFINED DISORDER
     Route: 048
  3. ASPIRIN [Concomitant]
     Indication: ILL-DEFINED DISORDER
     Route: 048
  4. IRON [Concomitant]
     Indication: ILL-DEFINED DISORDER
     Route: 048
  5. RISPERDAL [Suspect]
     Indication: PARKINSON'S DISEASE
     Route: 048
  6. BISOPROLOL FUMARATE [Concomitant]
     Indication: ILL-DEFINED DISORDER
     Route: 065
  7. DIGOXIN [Concomitant]
     Indication: ILL-DEFINED DISORDER
     Route: 048
  8. ROPINIROLE [Suspect]
     Route: 048
  9. ROPINIROLE [Suspect]
     Route: 048
  10. LACTULOSE [Concomitant]
     Indication: ILL-DEFINED DISORDER
     Route: 048
  11. SINEMET CR [Concomitant]
     Indication: ILL-DEFINED DISORDER
     Route: 048
  12. SINEMET [Concomitant]
     Indication: ILL-DEFINED DISORDER
     Route: 048
  13. AMOXICILLIN TRIHYDRATE [Concomitant]
     Indication: PARKINSON'S DISEASE
     Route: 048
  14. SPARTEINE SULFATE [Concomitant]
     Indication: PRODUCT USED FOR UNKNOWN INDICATION
     Route: 048
  15. FUROSEMIDE [Concomitant]
     Indication: ILL-DEFINED DISORDER
     Route: 048
  16. SINEMET [Concomitant]
     Route: 048
  17. CARBIMAZOLE [Concomitant]
     Indication: ILL-DEFINED DISORDER
     Route: 048
  18. CARBIDOPA [Concomitant]
     Indication: PARKINSON'S DISEASE
     Route: 065
  19. LEVODOPA [Concomitant]
     Indication: PARKINSON'S DISEASE
     Route: 065
  20. SINEMET [Concomitant]
     Indication: ILL-DEFINED DISORDER
     Route: 048
  21. FORTISIP [Concomitant]
     Route: 048

REACTIONS (3)
  - DEATH [None]
  - WRONG DRUG ADMINISTERED [None]
  - OFF LABEL USE [None]
